FAERS Safety Report 4355313-9 (Version None)
Quarter: 2004Q2

REPORT INFORMATION
  Report Type: 
  Country: None (occurrence: None)
  Receive Date: 20040504
  Receipt Date: 20031007
  Transmission Date: 20050107
  Serious: Yes (Hospitalization)
  Sender: FDA-Public Use
  Company Number: 200305347

PATIENT
  Age: 92 Year
  Sex: Male

DRUGS (9)
  1. FLEXERIL [Suspect]
     Indication: BACK INJURY
     Dosage: 5 MG TID PRN PO
     Route: 048
     Dates: start: 20030818, end: 20030818
  2. SYNTHROID [Concomitant]
  3. LASIX [Concomitant]
  4. DIGOXIN [Concomitant]
  5. POTASSIUM CHLORIDE [Concomitant]
  6. TIMOPTIC [Concomitant]
  7. PRINIVIL (LISNIOPRIL HCL) [Concomitant]
  8. FOSAMAX [Concomitant]
  9. PROCRIT (EPOETIN ALPHA) [Concomitant]

REACTIONS (4)
  - CONFUSIONAL STATE [None]
  - DELUSION [None]
  - DIFFICULTY IN WALKING [None]
  - MENTAL STATUS CHANGES [None]
